FAERS Safety Report 8004746-8 (Version None)
Quarter: 2011Q4

REPORT INFORMATION
  Report Type: 
  Country: None (occurrence: None)
  Receive Date: 20111220
  Receipt Date: 20111205
  Transmission Date: 20120403
  Serious: Yes (Death)
  Sender: FDA-Public Use
  Company Number: 1000022234

PATIENT
  Age: 23 Year
  Sex: Female

DRUGS (6)
  1. TERCIAN (CYAMEMAZINE) (TABLETS) [Suspect]
     Indication: DEPRESSION
     Dosage: INGESTION OF 80 TABLETS
     Dates: start: 20080901
  2. CITALOPRAM HYDROBROMIDE [Suspect]
     Dosage: 2 DF (2 DOSAGE FORMS, 1 IN 1 D) ORAL, INGESTION OF 84 TABLETS (3 DOSAGE FORMS, 1 IN 1 D), ORAL
     Route: 048
     Dates: start: 20081106
  3. CITALOPRAM HYDROBROMIDE [Suspect]
     Dosage: 2 DF (2 DOSAGE FORMS, 1 IN 1 D) ORAL, INGESTION OF 84 TABLETS (3 DOSAGE FORMS, 1 IN 1 D), ORAL
     Route: 048
     Dates: start: 20080901
  4. LITHIUM CARBONATE [Suspect]
     Indication: DEPRESSION
     Dosage: INGESTION OF 130 TABLETS (1 IN 1 D), ORAL
     Route: 048
     Dates: start: 20080901
  5. TRANXENE [Suspect]
     Indication: DEPRESSION
     Dosage: 4 DF (4 DOSAGE FORMS, 1 IN 1 D), INGESTION OF 130 TABLETS (40 MG, 1 IN 1 D)
     Dates: start: 20081015
  6. TRANXENE [Suspect]
     Indication: DEPRESSION
     Dosage: 4 DF (4 DOSAGE FORMS, 1 IN 1 D), INGESTION OF 130 TABLETS (40 MG, 1 IN 1 D)
     Dates: start: 20080601

REACTIONS (9)
  - BULIMIA NERVOSA [None]
  - HEAD BANGING [None]
  - SUICIDE ATTEMPT [None]
  - EUPHORIC MOOD [None]
  - INTENTIONAL SELF-INJURY [None]
  - BIPOLAR DISORDER [None]
  - COMA [None]
  - ANXIETY [None]
  - DISCOMFORT [None]
